FAERS Safety Report 6919218-9 (Version None)
Quarter: 2010Q3

REPORT INFORMATION
  Report Type: 
  Country: None (occurrence: None)
  Receive Date: 20100811
  Receipt Date: 20100805
  Transmission Date: 20110219
  Serious: Yes (Hospitalization, Other)
  Sender: FDA-Public Use
  Company Number: DE-ABBOTT-10P-062-0659978-00

PATIENT

DRUGS (2)
  1. RITONAVIR [Suspect]
     Indication: HIV INFECTION
  2. TRIAMCINOLONE ACETONIDE [Interacting]
     Indication: PRODUCT USED FOR UNKNOWN INDICATION

REACTIONS (2)
  - CUSHING'S SYNDROME [None]
  - DRUG INTERACTION [None]
